FAERS Safety Report 6496716-6 (Version None)
Quarter: 2009Q4

REPORT INFORMATION
  Report Type: 
  Country: None (occurrence: None)
  Receive Date: 20091211
  Receipt Date: 20091130
  Transmission Date: 20100525
  Serious: No
  Sender: FDA-Public Use
  Company Number: TPA2009A03989

PATIENT
  Age: 64 Year
  Sex: Female
  Weight: 75.7507 kg

DRUGS (9)
  1. PREVACID [Suspect]
     Indication: GASTROOESOPHAGEAL REFLUX DISEASE
     Dosage: SEE IMAGE/COUPLE OF WEEKS
     Route: 048
     Dates: start: 19980101, end: 19980101
  2. PREVACID [Suspect]
     Indication: OESOPHAGEAL STENOSIS
     Dosage: SEE IMAGE/COUPLE OF WEEKS
     Route: 048
     Dates: start: 19980101, end: 19980101
  3. PREVACID [Suspect]
     Indication: GASTROOESOPHAGEAL REFLUX DISEASE
     Dosage: SEE IMAGE/COUPLE OF WEEKS
     Route: 048
     Dates: start: 19980101
  4. PREVACID [Suspect]
     Indication: OESOPHAGEAL STENOSIS
     Dosage: SEE IMAGE/COUPLE OF WEEKS
     Route: 048
     Dates: start: 19980101
  5. PREVACID [Suspect]
     Dosage: 30 MG, 1 IN 1 D, PER ORAL
     Route: 048
     Dates: end: 20081105
  6. PREVACID [Suspect]
     Dosage: 30 MG, 1 IN 1 D, PER ORAL
     Route: 048
     Dates: start: 20080101
  7. SYNTHROID [Concomitant]
  8. CLARITIN [Concomitant]
  9. UNSPECIFIED ESTROGEN PATCH (ESTROGENS) [Concomitant]

REACTIONS (7)
  - BURNING SENSATION [None]
  - EATING DISORDER [None]
  - EYE IRRITATION [None]
  - HYPOTHYROIDISM [None]
  - MUSCLE TWITCHING [None]
  - PHOTOPHOBIA [None]
  - VISION BLURRED [None]
